FAERS Safety Report 9331935 (Version 4)
Quarter: 2013Q4

REPORT INFORMATION
  Report Type: Spontaneous
  Country: JP (occurrence: JP)
  Receive Date: 20130605
  Receipt Date: 20131023
  Transmission Date: 20140711
  Serious: Yes (Death, Hospitalization, Other)
  Sender: FDA-Public Use
  Company Number: JP-UCBSA-087308

PATIENT
  Age: 63 Year
  Sex: Male
  Weight: 65.9 kg

DRUGS (3)
  1. CIMZIA [Suspect]
     Indication: RHEUMATOID ARTHRITIS
     Dosage: DOSE: 200 MG
     Route: 058
     Dates: start: 20130322, end: 20130502
  2. RHEUMATREX [Concomitant]
     Dosage: DAILY DOSE: 4 MG
     Dates: start: 20121201
  3. PREDONINE [Concomitant]
     Dates: start: 20121201

REACTIONS (3)
  - Lung neoplasm malignant [Fatal]
  - Intervertebral disc protrusion [Unknown]
  - Rib fracture [Unknown]
